FAERS Safety Report 5096552-1 (Version None)
Quarter: 2006Q3

REPORT INFORMATION
  Report Type: 
  Country: None (occurrence: None)
  Receive Date: 20060830
  Receipt Date: 20060817
  Transmission Date: 20061208
  Serious: Yes (Other)
  Sender: FDA-Public Use
  Company Number: 2006099057

PATIENT
  Age: 75 Year
  Sex: Female

DRUGS (3)
  1. CELEBREX [Suspect]
     Indication: ARTHRITIS
     Dosage: 100 MG (100 MG, 1 IN 1 D) ORAL
     Route: 048
  2. INDAPAMIDE [Concomitant]
  3. SYNTHROID [Concomitant]

REACTIONS (1)
  - PERICARDIAL EFFUSION [None]
